FAERS Safety Report 8047186-8 (Version None)
Quarter: 2012Q1

REPORT INFORMATION
  Report Type: 
  Country: None (occurrence: None)
  Receive Date: 20120116
  Receipt Date: 20120103
  Transmission Date: 20120608
  Serious: Yes (Other)
  Sender: FDA-Public Use
  Company Number: FR-SANOFI-AVENTIS-2012SA000453

PATIENT
  Age: 29 Year
  Sex: Male

DRUGS (5)
  1. CLOFARABINE [Suspect]
     Route: 042
     Dates: start: 20111101, end: 20111103
  2. MITOXANTRONE [Suspect]
     Route: 042
     Dates: start: 20111103, end: 20111103
  3. VEPESID [Suspect]
     Route: 042
     Dates: start: 20111103
  4. FASTURTEC [Suspect]
     Route: 042
  5. DEXAMETHASONE SODIUM PHOSPHATE [Suspect]
     Route: 065

REACTIONS (2)
  - CYTOLYTIC HEPATITIS [None]
  - PROTHROMBIN TIME SHORTENED [None]
